FAERS Safety Report 21094857 (Version 1)
Quarter: 2022Q3

REPORT INFORMATION
  Report Type: Spontaneous
  Country: JP (occurrence: JP)
  Receive Date: 20220718
  Receipt Date: 20220718
  Transmission Date: 20221027
  Serious: Yes (Death, Other)
  Sender: FDA-Public Use
  Company Number: JP-JAZZ-2022-JP-023737

PATIENT
  Age: 13 Year
  Sex: Female

DRUGS (2)
  1. DEFITELIO [Suspect]
     Active Substance: DEFIBROTIDE SODIUM
     Indication: Venoocclusive liver disease
     Dosage: UNK
     Route: 042
     Dates: start: 20220427, end: 20220501
  2. THROMBOMODULIN ALFA [Concomitant]
     Active Substance: THROMBOMODULIN ALFA
     Indication: Pseudomonas infection
     Dosage: UNK

REACTIONS (3)
  - Venoocclusive liver disease [Fatal]
  - Condition aggravated [Fatal]
  - Haemorrhage [Fatal]

NARRATIVE: CASE EVENT DATE: 20220501
